FAERS Safety Report 21582818 (Version 2)
Quarter: 2023Q2

REPORT INFORMATION
  Report Type: Report from Study
  Country: US (occurrence: US)
  Receive Date: 20221111
  Receipt Date: 20230406
  Transmission Date: 20230722
  Serious: No
  Sender: FDA-Public Use
  Company Number: US-ABBVIE-4159817

PATIENT
  Age: 63 Year
  Sex: Female

DRUGS (1)
  1. RINVOQ [Suspect]
     Active Substance: UPADACITINIB
     Indication: Rheumatoid arthritis
     Route: 048
     Dates: start: 20210422

REACTIONS (5)
  - Fall [Recovered/Resolved]
  - Back injury [Unknown]
  - COVID-19 [Recovered/Resolved]
  - Limb injury [Unknown]
  - Neck injury [Unknown]

NARRATIVE: CASE EVENT DATE: 20221001
